FAERS Safety Report 9247586 (Version 1)
Quarter: 2013Q2

REPORT INFORMATION
  Report Type: Spontaneous
  Country: US (occurrence: US)
  Receive Date: 20130423
  Receipt Date: 20130423
  Transmission Date: 20140414
  Serious: Yes (Hospitalization)
  Sender: FDA-Public Use
  Company Number: US-ELI_LILLY_AND_COMPANY-US201303001780

PATIENT
  Sex: Female
  Weight: 77.1 kg

DRUGS (1)
  1. FORTEO [Suspect]
     Indication: OSTEOPOROSIS
     Dosage: UNK, QD
     Route: 058
     Dates: start: 201302

REACTIONS (3)
  - Systemic lupus erythematosus [Recovered/Resolved]
  - Spinal column stenosis [Recovered/Resolved]
  - Arthralgia [Recovered/Resolved]
